FAERS Safety Report 4988899-1 (Version None)
Quarter: 2006Q2

REPORT INFORMATION
  Report Type: 
  Country: None (occurrence: None)
  Receive Date: 20060425
  Receipt Date: 20060411
  Transmission Date: 20061013
  Serious: Yes (Other)
  Sender: FDA-Public Use
  Company Number: 222241

PATIENT
  Age: 55 Year
  Sex: Female
  Weight: 75.2 kg

DRUGS (9)
  1. RITUXIMAB (RITUXIMAB) CONC FOR  SOLUTION FOR INFUSION [Suspect]
     Indication: RHEUMATOID ARTHRITIS
     Dosage: 1000 MG, DAYS 1 + 15, INTRAVENOUS
     Route: 042
     Dates: start: 20051222
  2. METHYLPREDNISOLONE [Suspect]
     Indication: RHEUMATOID ARTHRITIS
     Dosage: 100 MG, DAYS 1 + 15, INTRAVENOUS
     Route: 042
     Dates: start: 20051222
  3. METHYLPREDNISOLONE [Suspect]
  4. PREDNISONE TAB [Suspect]
     Indication: RHEUMATOID ARTHRITIS
     Dosage: ORAL
     Route: 048
     Dates: start: 20051223, end: 20051230
  5. ALTACE [Concomitant]
  6. LEVOXYL [Concomitant]
  7. FOLIC ACID [Concomitant]
  8. DICLOFENAC SODIUM [Concomitant]
  9. METHOTREXATE [Concomitant]

REACTIONS (5)
  - CONDITION AGGRAVATED [None]
  - HYPERTENSION [None]
  - HYPOAESTHESIA [None]
  - LACUNAR INFARCTION [None]
  - PARAESTHESIA [None]
